FAERS Safety Report 8851280 (Version 1)
Quarter: 2012Q4

REPORT INFORMATION
  Report Type: 
  Country: US (occurrence: US)
  Receive Date: 20121019
  Receipt Date: 20121019
  Transmission Date: 20130627
  Serious: Yes (Hospitalization)
  Sender: FDA-Public Use
  Company Number: US-CELGENEUS-163-21880-12101928

PATIENT
  Sex: Male

DRUGS (3)
  1. REVLIMID [Suspect]
     Indication: LYMPHOMA NOS
     Dosage: 10 Milligram
     Route: 048
     Dates: start: 20111209
  2. REVLIMID [Suspect]
     Dosage: 15-20mg
     Route: 048
     Dates: start: 201201
  3. REVLIMID [Suspect]
     Dosage: 10 Milligram
     Route: 048
     Dates: start: 201210

REACTIONS (1)
  - Speech disorder [Unknown]
